FAERS Safety Report 13105317 (Version 1)
Quarter: 2017Q1

REPORT INFORMATION
  Report Type: Report from Study
  Country: US (occurrence: US)
  Receive Date: 20170111
  Receipt Date: 20170111
  Transmission Date: 20170428
  Serious: Yes (Other)
  Sender: FDA-Public Use
  Company Number: US-SA-2014SA152317

PATIENT
  Age: 51 Year
  Sex: Female

DRUGS (1)
  1. AUBAGIO [Suspect]
     Active Substance: TERIFLUNOMIDE
     Indication: MULTIPLE SCLEROSIS
     Route: 048
     Dates: start: 20130619

REACTIONS (4)
  - Unevaluable event [Unknown]
  - Mycobacterium tuberculosis complex test positive [Unknown]
  - Acne [Unknown]
  - Nervous system disorder [Not Recovered/Not Resolved]
